FAERS Safety Report 6492463-5 (Version None)
Quarter: 2009Q4

REPORT INFORMATION
  Report Type: 
  Country: None (occurrence: None)
  Receive Date: 20091211
  Receipt Date: 20091211
  Transmission Date: 20100525
  Serious: Yes (Other)
  Sender: FDA-Public Use
  Company Number: None

PATIENT
  Sex: Female
  Weight: 113.3993 kg

DRUGS (1)
  1. PRAVASTATIN [Suspect]
     Indication: BLOOD CHOLESTEROL
     Dosage: ONCE (1) TABLET NIGHTLY

REACTIONS (3)
  - DISCOMFORT [None]
  - FATIGUE [None]
  - MYALGIA [None]
